FAERS Safety Report 9356954 (Version 2)
Quarter: 2013Q3

REPORT INFORMATION
  Report Type: Report from Study
  Country: US (occurrence: US)
  Receive Date: 20130620
  Receipt Date: 20130717
  Transmission Date: 20140515
  Serious: Yes (Hospitalization)
  Sender: FDA-Public Use
  Company Number: US-ROCHE-1239151

PATIENT
  Sex: Female
  Weight: 77.18 kg

DRUGS (8)
  1. XOLAIR [Suspect]
     Indication: ASTHMA
     Route: 065
  2. XOPENEX [Concomitant]
     Dosage: 1.25 MG/3 ML
     Route: 065
  3. PREDNISONE [Concomitant]
     Route: 048
  4. ASMANEX [Concomitant]
     Indication: ASTHMA
     Route: 055
  5. FORADIL [Concomitant]
     Indication: ASTHMA
     Route: 055
  6. ATROVENT [Concomitant]
     Dosage: 0.02 SOLUTION
     Route: 055
  7. OXYGEN [Concomitant]
     Dosage: 3.0
     Route: 055
  8. MUCINEX [Concomitant]
     Route: 065

REACTIONS (2)
  - Pneumonia [Recovering/Resolving]
  - Rash macular [Recovered/Resolved]
